FAERS Safety Report 9440736 (Version 2)
Quarter: 2013Q3

REPORT INFORMATION
  Report Type: Spontaneous
  Country: FR (occurrence: FR)
  Receive Date: 20130805
  Receipt Date: 20130819
  Transmission Date: 20140515
  Serious: Yes (Other)
  Sender: FDA-Public Use
  Company Number: FR-JNJFOC-20130716263

PATIENT
  Sex: Male

DRUGS (3)
  1. RISPERDAL [Suspect]
     Indication: SCHIZOPHRENIA
     Dosage: INITIATED SINCE SEVERAL YEARS
     Route: 048
     Dates: start: 2010, end: 20130730
  2. TERCIAN [Concomitant]
     Route: 048
     Dates: start: 2008
  3. HAVLANE [Concomitant]
     Route: 048
     Dates: start: 2009

REACTIONS (3)
  - Blood creatine phosphokinase increased [Not Recovered/Not Resolved]
  - Metabolic syndrome [Unknown]
  - Weight increased [Unknown]
